FAERS Safety Report 4624221-8 (Version None)
Quarter: 2005Q1

REPORT INFORMATION
  Report Type: 
  Country: None (occurrence: None)
  Receive Date: 20050330
  Receipt Date: 20050330
  Transmission Date: 20050727
  Serious: Yes (Death)
  Sender: FDA-Public Use
  Company Number: None

PATIENT
  Age: 59 Year
  Sex: Female

DRUGS (1)
  1. LORAZEPAM [Suspect]
     Indication: ANXIETY
     Dosage: 2 MG IV X 1
     Route: 042

REACTIONS (9)
  - CARDIO-RESPIRATORY ARREST [None]
  - COMA [None]
  - DYSPNOEA [None]
  - HYPOVENTILATION [None]
  - MOANING [None]
  - MOUTH BREATHING [None]
  - RESTLESSNESS [None]
  - SNORING [None]
  - UNRESPONSIVE TO VERBAL STIMULI [None]
